FAERS Safety Report 8397476-4 (Version None)
Quarter: 2012Q2

REPORT INFORMATION
  Report Type: 
  Country: None (occurrence: None)
  Receive Date: 20120529
  Receipt Date: 20120529
  Transmission Date: 20120825
  Serious: Yes (Other)
  Sender: FDA-Public Use
  Company Number: None

PATIENT
  Age: 47 Year
  Sex: Male
  Weight: 90.7194 kg

DRUGS (1)
  1. CYCLOBENZAPRINE HCL [Suspect]
     Indication: MYALGIA
     Dosage: 10MG ONCE PER DAY PO
     Route: 048
     Dates: start: 20120425, end: 20120516

REACTIONS (1)
  - CELLULITIS [None]
